FAERS Safety Report 25539024 (Version 1)
Quarter: 2025Q3

REPORT INFORMATION
  Report Type: Spontaneous
  Country: US (occurrence: None)
  Receive Date: 20250709
  Receipt Date: 20250709
  Transmission Date: 20251021
  Serious: Yes (Hospitalization)
  Sender: FDA-CTU
  Company Number: None

PATIENT
  Age: 54 Year
  Sex: Female

DRUGS (1)
  1. KISQALI [Suspect]
     Active Substance: RIBOCICLIB SUCCINATE
     Dosage: FREQUENCY : DAILY;?

REACTIONS (5)
  - Vomiting [None]
  - Pneumonia [None]
  - Arthralgia [None]
  - Arthritis [None]
  - Back pain [None]
